FAERS Safety Report 6496775-0 (Version None)
Quarter: 2009Q4

REPORT INFORMATION
  Report Type: 
  Country: None (occurrence: None)
  Receive Date: 20091125
  Receipt Date: 20090417
  Transmission Date: 20100525
  Serious: Yes (Hospitalization)
  Sender: FDA-Public Use
  Company Number: 2009BH006145

PATIENT
  Age: 16 Year
  Sex: Male
  Weight: 40.7 kg

DRUGS (7)
  1. DIANEAL [Suspect]
     Indication: PERITONEAL DIALYSIS
     Dosage: 8.5 L; EVERY DAY; IP
     Route: 033
     Dates: start: 20060101
  2. CALCITRIOL [Concomitant]
  3. CALCIUM CARBONATE [Concomitant]
  4. EPOGEN [Concomitant]
  5. FERROUS SULFATE TAB [Concomitant]
  6. DIALYVITE [Concomitant]
  7. TYLENOL W/ CODEINE NO. 3 [Concomitant]

REACTIONS (3)
  - PERITONEAL DIALYSIS COMPLICATION [None]
  - PERITONITIS BACTERIAL [None]
  - PYREXIA [None]
